FAERS Safety Report 19973563 (Version 1)
Quarter: 2021Q4

REPORT INFORMATION
  Report Type: Report from Study
  Country: US (occurrence: US)
  Receive Date: 20211020
  Receipt Date: 20211020
  Transmission Date: 20220303
  Serious: Yes (Hospitalization)
  Sender: FDA-Public Use
  Company Number: US-ROCHE-2935089

PATIENT
  Age: 73 Year
  Sex: Male
  Weight: 52.5 kg

DRUGS (5)
  1. ATEZOLIZUMAB [Suspect]
     Active Substance: ATEZOLIZUMAB
     Indication: Small cell lung cancer
     Dosage: LAST ADMINISTERED: 19/MAY/2021?ON DAY 1 OR 2 OF EACH CHEMOTHERAPY CYCLE
     Route: 041
     Dates: start: 20210428
  2. CARBOPLATIN [Suspect]
     Active Substance: CARBOPLATIN
     Indication: Small cell lung cancer
     Dosage: LAST ADMINISTERED: 19/MAY/2021 (340 MG)
     Route: 042
     Dates: start: 20210428
  3. ETOPOSIDE [Suspect]
     Active Substance: ETOPOSIDE
     Indication: Small cell lung cancer
     Dosage: LAST ADMINISTERED: 30/APR/2021 AND 21/MAY/2021 (420 MG)?ON DAYS 1-3 OF EACH CYCLE
     Route: 042
     Dates: start: 20210428
  4. PREDNISONE [Concomitant]
     Active Substance: PREDNISONE
  5. METOPROLOL [Concomitant]
     Active Substance: METOPROLOL

REACTIONS (4)
  - Dehydration [Not Recovered/Not Resolved]
  - Oesophagitis [Recovered/Resolved]
  - Atrial fibrillation [Not Recovered/Not Resolved]
  - Pneumonia [Not Recovered/Not Resolved]

NARRATIVE: CASE EVENT DATE: 20210511
